FAERS Safety Report 11432888 (Version 2)
Quarter: 2015Q3

REPORT INFORMATION
  Report Type: Spontaneous
  Country: US (occurrence: US)
  Receive Date: 20150828
  Receipt Date: 20150930
  Transmission Date: 20151125
  Serious: No
  Sender: FDA-Public Use
  Company Number: US-ASTRAZENECA-2015SE80339

PATIENT
  Sex: Female
  Weight: 104.3 kg

DRUGS (1)
  1. PULMICORT FLEXHALER [Suspect]
     Active Substance: BUDESONIDE
     Indication: WHEEZING
     Route: 055
     Dates: start: 20150816, end: 20150818

REACTIONS (4)
  - Device issue [Unknown]
  - Off label use [Unknown]
  - Wheezing [Unknown]
  - Drug ineffective [Unknown]
